FAERS Safety Report 21915771 (Version 3)
Quarter: 2023Q2

REPORT INFORMATION
  Report Type: Spontaneous
  Country: US (occurrence: US)
  Receive Date: 20230126
  Receipt Date: 20230606
  Transmission Date: 20230722
  Serious: No
  Sender: FDA-Public Use
  Company Number: US-PFIZER INC-202300037616

PATIENT
  Age: 63 Year
  Sex: Female

DRUGS (1)
  1. BOSULIF [Suspect]
     Active Substance: BOSUTINIB MONOHYDRATE
     Dosage: 300 MG, DAILY (TAKE 3 TABLETS BY MOUTH DAILY)
     Route: 048
     Dates: start: 202211

REACTIONS (4)
  - Diarrhoea [Unknown]
  - Weight decreased [Recovered/Resolved]
  - Liver function test increased [Recovered/Resolved]
  - Neoplasm progression [Recovered/Resolved]
